FAERS Safety Report 21266008 (Version 1)
Quarter: 2022Q3

REPORT INFORMATION
  Report Type: Spontaneous
  Country: US (occurrence: US)
  Receive Date: 20220829
  Receipt Date: 20220829
  Transmission Date: 20221027
  Serious: Yes (Other)
  Sender: FDA-Public Use
  Company Number: US-drreddys-LIT/USA/22/0153652

PATIENT
  Age: 70 Year
  Sex: Male

DRUGS (5)
  1. PRIMIDONE [Interacting]
     Active Substance: PRIMIDONE
     Indication: Essential tremor
  2. PRIMIDONE [Interacting]
     Active Substance: PRIMIDONE
     Dosage: 200MG IN THE MORNING AND 250MG IN THE EVENING
  3. WARFARIN [Interacting]
     Active Substance: WARFARIN
     Indication: Anticoagulant therapy
  4. WARFARIN [Interacting]
     Active Substance: WARFARIN
     Dosage: AGAIN SWITCHED TO WARFARIN FROM DABIGATRAN ETEXILATE
  5. DABIGATRAN ETEXILATE [Suspect]
     Active Substance: DABIGATRAN ETEXILATE
     Indication: Anticoagulant therapy

REACTIONS (4)
  - Liver injury [Unknown]
  - International normalised ratio decreased [Unknown]
  - Drug interaction [Unknown]
  - Off label use [Unknown]
